FAERS Safety Report 6483439-2 (Version None)
Quarter: 2009Q4

REPORT INFORMATION
  Report Type: 
  Country: None (occurrence: None)
  Receive Date: 20091209
  Receipt Date: 20091130
  Transmission Date: 20100525
  Serious: Yes (Hospitalization, Other)
  Sender: FDA-Public Use
  Company Number: IL-PFIZER INC-2009301000

PATIENT
  Age: 38 Year
  Sex: Male

DRUGS (3)
  1. GEODON [Suspect]
     Indication: SCHIZOPHRENIA
     Dosage: 80 MG, 2X/DAY
     Route: 048
  2. TOPAMAX [Suspect]
     Dosage: UNK
  3. ZYPREXA [Concomitant]

REACTIONS (3)
  - DELIRIUM [None]
  - MAJOR DEPRESSION [None]
  - SUICIDE ATTEMPT [None]
